FAERS Safety Report 6237010-8 (Version None)
Quarter: 2009Q2

REPORT INFORMATION
  Report Type: 
  Country: None (occurrence: None)
  Receive Date: 20090619
  Receipt Date: 20090320
  Transmission Date: 20091009
  Serious: No
  Sender: FDA-Public Use
  Company Number: US-ASTRAZENECA-2009UW07350

PATIENT
  Sex: Female
  Weight: 80.3 kg

DRUGS (3)
  1. SYMBICORT [Suspect]
     Indication: ASTHMA
     Dosage: 640 MCG
     Route: 055
  2. LEVOXYL [Concomitant]
     Indication: THYROID DISORDER
  3. SINGULAIR [Concomitant]

REACTIONS (1)
  - PULMONARY CONGESTION [None]
